FAERS Safety Report 5549245-8 (Version None)
Quarter: 2007Q4

REPORT INFORMATION
  Report Type: 
  Country: None (occurrence: None)
  Receive Date: 20071210
  Receipt Date: 20071204
  Transmission Date: 20080405
  Serious: Yes (Death, Hospitalization)
  Sender: FDA-Public Use
  Company Number: 163-21880-07031361

PATIENT
  Age: 79 Year
  Sex: Male

DRUGS (4)
  1. REVLIMID [Suspect]
     Indication: MULTIPLE MYELOMA
     Dosage: 15 MG, 1 IN 1 D, ORAL
     Route: 048
     Dates: start: 20070102, end: 20070201
  2. LOVENOX [Concomitant]
  3. DURAGESIC (FENTANYL) POULTRICE OR PATCH) [Concomitant]
  4. DECADRON [Concomitant]

REACTIONS (10)
  - BLOOD CREATININE INCREASED [None]
  - CARDIAC FAILURE CONGESTIVE [None]
  - CEREBROVASCULAR ACCIDENT [None]
  - CONFUSIONAL STATE [None]
  - DISEASE PROGRESSION [None]
  - INFECTION [None]
  - MULTI-ORGAN FAILURE [None]
  - RED BLOOD CELL COUNT DECREASED [None]
  - RENAL DISORDER [None]
  - SEPSIS [None]
